FAERS Safety Report 15551465 (Version 1)
Quarter: 2018Q4

REPORT INFORMATION
  Report Type: Spontaneous
  Country: US (occurrence: US)
  Receive Date: 20181025
  Receipt Date: 20181025
  Transmission Date: 20190205
  Serious: Yes (Hospitalization)
  Sender: FDA-Public Use
  Company Number: US-BRAINTREE LABORATORIES-180538

PATIENT
  Age: 67 Year
  Sex: Male
  Weight: 149.68 kg

DRUGS (1)
  1. GOLYTELY [Suspect]
     Active Substance: POLYETHYLENE GLYCOL 3350\POTASSIUM CHLORIDE\SODIUM BICARBONATE\SODIUM CHLORIDE\SODIUM SULFATE ANHYDROUS
     Indication: COLONOSCOPY
     Dosage: 4L
     Route: 048
     Dates: start: 20180612, end: 20180613

REACTIONS (8)
  - Stress cardiomyopathy [None]
  - Blood potassium decreased [None]
  - Anxiety [None]
  - Dysphonia [None]
  - Myasthenia gravis crisis [None]
  - Prescribed overdose [None]
  - Diarrhoea [None]
  - Oxygen saturation decreased [None]

NARRATIVE: CASE EVENT DATE: 20180613
